FAERS Safety Report 23416336 (Version 1)
Quarter: 2024Q1

REPORT INFORMATION
  Report Type: Other
  Country: None (occurrence: GB)
  Receive Date: 20240118
  Receipt Date: 20240118
  Transmission Date: 20240410
  Serious: Yes (Life-Threatening, Hospitalization, Other)
  Sender: FDA-Public Use
  Company Number: GB-Creekwood Pharmaceuticals LLC-2151507

PATIENT
  Age: 26 Year
  Sex: Female

DRUGS (1)
  1. PREGABALIN [Suspect]
     Active Substance: PREGABALIN
     Indication: Product used for unknown indication
     Route: 065

REACTIONS (5)
  - Cardiac arrest [Unknown]
  - Overdose [Unknown]
  - Unresponsive to stimuli [Unknown]
  - Snoring [Unknown]
  - Pulseless electrical activity [Unknown]
